FAERS Safety Report 5856883-1 (Version None)
Quarter: 2008Q3

REPORT INFORMATION
  Report Type: 
  Country: None (occurrence: None)
  Receive Date: 20080821
  Receipt Date: 20080807
  Transmission Date: 20090109
  Serious: Yes (Hospitalization)
  Sender: FDA-Public Use
  Company Number: 2008001951

PATIENT
  Age: 36 Year
  Sex: Female

DRUGS (3)
  1. ERLOTINIB (ERLOTINIB) (TABLET) (ERLOTINIB) [Suspect]
     Indication: HEPATIC CANCER METASTATIC
     Dosage: 150 MG, QD, ORAL
     Route: 048
     Dates: start: 20080714, end: 20080728
  2. BEVACIZUMAB (INJECTION FOR INFUSION) [Suspect]
     Dosage: 305 MG, Q2W, INTRAVENOUS
     Route: 042
     Dates: start: 20080714, end: 20080728
  3. DOLCET [Concomitant]

REACTIONS (1)
  - ANAEMIA [None]
